FAERS Safety Report 15467579 (Version 2)
Quarter: 2018Q4

REPORT INFORMATION
  Report Type: Spontaneous
  Country: US (occurrence: US)
  Receive Date: 20181005
  Receipt Date: 20181122
  Transmission Date: 20190204
  Serious: No
  Sender: FDA-Public Use
  Company Number: US-GLENMARK PHARMACEUTICALS-2018GMK037105

PATIENT

DRUGS (2)
  1. CLOTRIMAZOLE. [Suspect]
     Active Substance: CLOTRIMAZOLE
     Dosage: UNK, BID
     Route: 061
     Dates: start: 201807, end: 20180815
  2. CLOTRIMAZOLE. [Suspect]
     Active Substance: CLOTRIMAZOLE
     Indication: GENITAL INFECTION FUNGAL
     Dosage: UNK
     Route: 061
     Dates: start: 201807

REACTIONS (2)
  - Expired product administered [Unknown]
  - Drug ineffective [Unknown]
